FAERS Safety Report 17855833 (Version 1)
Quarter: 2020Q2

REPORT INFORMATION
  Report Type: Spontaneous
  Country: US (occurrence: US)
  Receive Date: 20200603
  Receipt Date: 20200603
  Transmission Date: 20200714
  Serious: No
  Sender: FDA-Public Use
  Company Number: None

PATIENT
  Age: 44 Year
  Sex: Female
  Weight: 99 kg

DRUGS (7)
  1. CRYSELLE [Concomitant]
     Active Substance: ETHINYL ESTRADIOL\NORGESTREL
  2. FLONASE [Concomitant]
     Active Substance: FLUTICASONE PROPIONATE
  3. NP THYROID [Suspect]
     Active Substance: LEVOTHYROXINE\LIOTHYRONINE
     Indication: AUTOIMMUNE THYROIDITIS
     Dosage: ?          QUANTITY:30 TABLET(S);?
     Route: 048
     Dates: start: 20110105, end: 20200215
  4. CLARITIN [Concomitant]
     Active Substance: LORATADINE
  5. TTHYROID SUPPORT VITAMINS [Concomitant]
  6. ELDERBERRY VITAMINS [Concomitant]
  7. METOPROLOL SUCC ER [Concomitant]
     Active Substance: METOPROLOL SUCCINATE

REACTIONS (3)
  - Dizziness [None]
  - Headache [None]
  - Palpitations [None]

NARRATIVE: CASE EVENT DATE: 20200215
